FAERS Safety Report 14303728 (Version 1)
Quarter: 2017Q4

REPORT INFORMATION
  Report Type: Spontaneous
  Country: US (occurrence: US)
  Receive Date: 20171219
  Receipt Date: 20171219
  Transmission Date: 20180321
  Serious: Yes (Other)
  Sender: FDA-Public Use
  Company Number: None

PATIENT
  Sex: Male
  Weight: 65.25 kg

DRUGS (5)
  1. METFORMIN [Suspect]
     Active Substance: METFORMIN HYDROCHLORIDE
     Indication: PREOPERATIVE CARE
     Route: 048
     Dates: start: 20171214, end: 20171214
  2. GLIBURIDE [Concomitant]
     Active Substance: GLYBURIDE
  3. SIMBASTATIN [Concomitant]
  4. LINISOPRIL [Concomitant]
     Active Substance: LISINOPRIL
  5. LEVOFLOXACIN. [Suspect]
     Active Substance: LEVOFLOXACIN

REACTIONS (4)
  - Blood pressure decreased [None]
  - Blindness [None]
  - Drug interaction [None]
  - Paralysis [None]

NARRATIVE: CASE EVENT DATE: 20171214
